FAERS Safety Report 9632534 (Version 1)
Quarter: 2013Q4

REPORT INFORMATION
  Report Type: Other
  Country: TH (occurrence: TH)
  Receive Date: 20131018
  Receipt Date: 20131018
  Transmission Date: 20140711
  Serious: Yes (Other)
  Sender: FDA-Public Use
  Company Number: TH-BRISTOL-MYERS SQUIBB COMPANY-19583608

PATIENT
  Age: 59 Year
  Sex: Female

DRUGS (7)
  1. CARBOPLATIN [Suspect]
     Indication: NEOPLASM MALIGNANT
  2. PACLITAXEL [Suspect]
     Indication: NEOPLASM MALIGNANT
     Dosage: RECEIVED DRUG FOR 4 MORE CYCLE.
  3. ETOPOSIDE [Suspect]
     Indication: NEOPLASM MALIGNANT
  4. METHOTREXATE [Suspect]
     Indication: NEOPLASM MALIGNANT
  5. DACTINOMYCIN [Suspect]
     Indication: NEOPLASM MALIGNANT
  6. CYCLOPHOSPHAMIDE [Suspect]
     Indication: NEOPLASM MALIGNANT
  7. VINCRISTINE [Suspect]
     Indication: NEOPLASM MALIGNANT

REACTIONS (4)
  - Hypersensitivity [Recovered/Resolved]
  - Hepatitis [Recovered/Resolved]
  - Thrombocytopenia [Recovered/Resolved]
  - Malignant neoplasm progression [Recovered/Resolved]
